FAERS Safety Report 7911679-1 (Version None)
Quarter: 2011Q4

REPORT INFORMATION
  Report Type: 
  Country: None (occurrence: None)
  Receive Date: 20111114
  Receipt Date: 20111108
  Transmission Date: 20120403
  Serious: Yes (Hospitalization)
  Sender: FDA-Public Use
  Company Number: US-B.I. PHARMACEUTICALS,INC./RIDGEFIELD-2011-BP-24488BP

PATIENT
  Age: 83 Year
  Sex: Male
  Weight: 65 kg

DRUGS (5)
  1. FUROSEMIDE [Concomitant]
     Dosage: 20 MG
  2. PRADAXA [Suspect]
     Indication: ATRIAL FIBRILLATION
     Dosage: 300 MG
     Route: 048
     Dates: start: 20110923, end: 20110924
  3. ASPIRIN [Concomitant]
     Route: 048
  4. PLAVIX [Concomitant]
     Route: 048
  5. MULTAQ [Concomitant]
     Dosage: 800 MG
     Dates: start: 20001201

REACTIONS (2)
  - HAEMATOCHEZIA [None]
  - GASTROINTESTINAL HAEMORRHAGE [None]
